FAERS Safety Report 21934300 (Version 1)
Quarter: 2023Q1

REPORT INFORMATION
  Report Type: Other
  Country: AU (occurrence: None)
  Receive Date: 20230201
  Receipt Date: 20230201
  Transmission Date: 20230417
  Serious: Yes (Other)
  Sender: FDA-Public Use
  Company Number: AU-ROCHE-3214256

PATIENT
  Sex: Female

DRUGS (1)
  1. OCREVUS [Suspect]
     Active Substance: OCRELIZUMAB
     Indication: Relapsing-remitting multiple sclerosis
     Dosage: ONGOING: NO
     Route: 041
     Dates: start: 20191129

REACTIONS (27)
  - Nerve injury [Unknown]
  - Weight decreased [Unknown]
  - Gastrointestinal pain [Unknown]
  - Rash [Unknown]
  - Constipation [Unknown]
  - Pain [Unknown]
  - Abnormal faeces [Unknown]
  - Faeces discoloured [Unknown]
  - Milk allergy [Unknown]
  - Gastrointestinal haemorrhage [Unknown]
  - Neuralgia [Unknown]
  - Muscle spasms [Unknown]
  - Asthenia [Unknown]
  - Trigeminal neuralgia [Unknown]
  - Scratch [Unknown]
  - Pain in jaw [Unknown]
  - Eye pain [Unknown]
  - Nausea [Unknown]
  - Vertigo [Unknown]
  - Rhinalgia [Unknown]
  - Gastritis [Unknown]
  - Vomiting [Unknown]
  - Diarrhoea [Unknown]
  - Ageusia [Unknown]
  - Decreased appetite [Unknown]
  - Rhinorrhoea [Unknown]
  - Nasal inflammation [Unknown]

NARRATIVE: CASE EVENT DATE: 20220101
